FAERS Safety Report 24574943 (Version 1)
Quarter: 2024Q4

REPORT INFORMATION
  Report Type: Spontaneous
  Country: CO (occurrence: CO)
  Receive Date: 20241104
  Receipt Date: 20241104
  Transmission Date: 20250114
  Serious: Yes (Hospitalization, Other)
  Sender: CHEPLAPHARM
  Company Number: CO-ROCHE-10000114920

PATIENT
  Age: 64 Year
  Sex: Male
  Weight: 63 kg

DRUGS (21)
  1. CAPECITABINE [Suspect]
     Active Substance: CAPECITABINE
     Indication: Adenocarcinoma of colon
     Dosage: ON 27-JAN-2023, RECEIVED FIRST TREATMENT.
     Dates: start: 20230127
  2. BEVACIZUMAB [Suspect]
     Active Substance: BEVACIZUMAB
     Dosage: DOSE AND FREQUENCY WERE NOT REPORTED.?CYCLE #4 BEVACIZUMAB WAS ADDED 13-APR-2023.
     Route: 042
     Dates: start: 20230413
  3. BEVACIZUMAB [Suspect]
     Active Substance: BEVACIZUMAB
     Dosage: DOSE AND FREQUENCY WERE NOT REPORTED.? ON 16-FEB-2024, RECEIVED INTRAVENOUS BEVACIZUMAB.
     Route: 042
     Dates: start: 20240216
  4. BEVACIZUMAB [Suspect]
     Active Substance: BEVACIZUMAB
     Dosage: DOSE AND FREQUENCY WERE NOT REPORTED.? ON 14-JUN-2024, HE RECEIVED INTRAVENOUS BEVACIZUMAB 375 MG
     Route: 042
     Dates: start: 20240614
  5. OXALIPLATIN [Suspect]
     Active Substance: OXALIPLATIN
     Dosage: DOSE AND FREQUENCY WERE NOT REPORTED.?ON 27-JAN-2023, RECEIVED FIRST DOSE OF OXALIPLATIN.
     Dates: start: 20230127
  6. OXALIPLATIN [Suspect]
     Active Substance: OXALIPLATIN
     Dosage: DOSE AND FREQUENCY WERE NOT REPORTED.?ON 27-JAN-2023, RECEIVED FIRST DOSE OF OXALIPLATIN.?ON AN U...
     Route: 042
  7. LEUCOVORIN [Concomitant]
     Active Substance: LEUCOVORIN\LEUCOVORIN CALCIUM
     Dosage: DOSE AND FREQUENCY WERE NOT REPORTED
     Dates: start: 20230508
  8. LEUCOVORIN [Concomitant]
     Active Substance: LEUCOVORIN\LEUCOVORIN CALCIUM
     Dosage: DOSE AND FREQUENCY WERE NOT REPORTED?FOLFIRI  + BEVACIZUMAB REGIMEN
     Dates: start: 20240216
  9. LEUCOVORIN [Concomitant]
     Active Substance: LEUCOVORIN\LEUCOVORIN CALCIUM
     Dosage: DOSE AND FREQUENCY WERE NOT REPORTED; ?FOLFOX+ BEVACIZUMAB REGIMEN
     Dates: start: 20240614
  10. FLUOROURACIL [Concomitant]
     Active Substance: FLUOROURACIL
     Dosage: DOSE AND FREQUENCY WERE NOT REPORTED
     Route: 042
     Dates: start: 20230508
  11. FLUOROURACIL [Concomitant]
     Active Substance: FLUOROURACIL
     Dosage: DOSE AND FREQUENCY WERE NOT REPORTED; ?FOLFIRI  + BEVACIZUMAB REGIMEN
     Dates: start: 20240216
  12. FLUOROURACIL [Concomitant]
     Active Substance: FLUOROURACIL
     Dosage: DOSE AND FREQUENCY WERE NOT REPORTED; ?FOLFOX+ BEVACIZUMAB REGIMEN
     Route: 042
     Dates: start: 20240614
  13. FLUOROURACIL [Concomitant]
     Active Substance: FLUOROURACIL
     Dosage: DAY 1 AND 15
     Route: 042
  14. IRINOTECAN HYDROCHLORIDE [Concomitant]
     Active Substance: IRINOTECAN HYDROCHLORIDE
     Indication: Adenocarcinoma of colon
     Dosage: DOSE AND FREQUENCY WERE NOT REPORTED?FOLFIRI  + BEVACIZUMAB REGIMEN
     Dates: start: 20240216
  15. DEXAMETHASONE [Concomitant]
     Active Substance: DEXAMETHASONE
     Dosage: DAY 1 AND 15
     Route: 042
  16. PREDNISONE [Concomitant]
     Active Substance: PREDNISONE
     Dosage: DAILY DOSE: 10 MILLIGRAM
     Route: 048
  17. ONDANSETRON [Concomitant]
     Active Substance: ONDANSETRON
     Indication: Vomiting
     Dosage: EVERY 8 HOURS (TID)?DAILY DOSE: 24 MILLIGRAM
     Route: 048
  18. ONDANSETRON [Concomitant]
     Active Substance: ONDANSETRON
     Indication: Vomiting
     Dosage: DAY 1 AND 15
     Route: 042
  19. LOPERAMIDE [Concomitant]
     Active Substance: LOPERAMIDE
     Indication: Diarrhoea
     Dosage: EVERY 8 HOURS (TID)?DAILY DOSE: 6 MILLIGRAM
     Route: 048
  20. LOSARTAN [Concomitant]
     Active Substance: LOSARTAN
     Dosage: DAILY DOSE: 50 MILLIGRAM
     Route: 048
  21. PREGABALIN [Concomitant]
     Active Substance: PREGABALIN
     Dosage: VERY 12 HOURS (BID)?DAILY DOSE: 150 MILLIGRAM
     Route: 048

REACTIONS (13)
  - Intestinal fistula [Unknown]
  - Pain [Unknown]
  - Intestinal obstruction [Unknown]
  - Metastatic neoplasm [Unknown]
  - Retroperitoneal neoplasm metastatic [Unknown]
  - Disease progression [Unknown]
  - Lung neoplasm [Unknown]
  - Tumour marker increased [Unknown]
  - Asthenia [Unknown]
  - Decreased appetite [Unknown]
  - Somnolence [Unknown]
  - Cholelithiasis [Unknown]
  - Neuropathy peripheral [Unknown]

NARRATIVE: CASE EVENT DATE: 20230101
